FAERS Safety Report 18139575 (Version 1)
Quarter: 2020Q3

REPORT INFORMATION
  Report Type: Spontaneous
  Country: US (occurrence: US)
  Receive Date: 20200812
  Receipt Date: 20200812
  Transmission Date: 20201103
  Serious: No
  Sender: FDA-Public Use
  Company Number: US-PFIZER INC-2020309527

PATIENT
  Age: 60 Year

DRUGS (1)
  1. PHENYTOIN SODIUM. [Suspect]
     Active Substance: PHENYTOIN SODIUM
     Indication: SEIZURE
     Dosage: 2 DF, 2X/DAY (TAKE FOUR PILLS, TWO IN THE MORNING, TWO AT NIGHT)

REACTIONS (1)
  - Drug ineffective [Unknown]
